FAERS Safety Report 6919140-8 (Version None)
Quarter: 2010Q3

REPORT INFORMATION
  Report Type: 
  Country: None (occurrence: None)
  Receive Date: 20100811
  Receipt Date: 20100805
  Transmission Date: 20110219
  Serious: Yes (Other)
  Sender: FDA-Public Use
  Company Number: B0665932A

PATIENT
  Age: 60 Year
  Sex: Female

DRUGS (1)
  1. CIGANON CQ1 [Suspect]
     Dosage: 1PAT PER DAY
     Route: 062
     Dates: end: 20100703

REACTIONS (6)
  - APPLICATION SITE ERYTHEMA [None]
  - APPLICATION SITE PRURITUS [None]
  - APPLICATION SITE VESICLES [None]
  - BLISTER [None]
  - DERMATITIS CONTACT [None]
  - PAIN [None]
